FAERS Safety Report 16149572 (Version 1)
Quarter: 2019Q2

REPORT INFORMATION
  Report Type: Spontaneous
  Country: NO (occurrence: NO)
  Receive Date: 20190402
  Receipt Date: 20190402
  Transmission Date: 20190711
  Serious: Yes (Life-Threatening, Hospitalization, Disabling)
  Sender: FDA-Public Use
  Company Number: NO-TEVA-2019-NO-1031731

PATIENT
  Age: 67 Year
  Sex: Male

DRUGS (3)
  1. RIFABUTIN. [Suspect]
     Active Substance: RIFABUTIN
     Indication: MYCOBACTERIUM AVIUM COMPLEX INFECTION
     Dosage: 300 MILLIGRAM DAILY;
     Route: 048
     Dates: start: 20181011, end: 20190107
  2. CLARITHROMYCIN. [Suspect]
     Active Substance: CLARITHROMYCIN
     Indication: MYCOBACTERIUM AVIUM COMPLEX INFECTION
     Dosage: 1000 MILLIGRAM DAILY;
     Route: 048
     Dates: start: 20181011, end: 20190107
  3. MYAMBUTOL [Suspect]
     Active Substance: ETHAMBUTOL HYDROCHLORIDE
     Indication: MYCOBACTERIUM AVIUM COMPLEX INFECTION
     Dosage: 1000 MILLIGRAM DAILY;
     Route: 048
     Dates: start: 20181011, end: 20190107

REACTIONS (2)
  - Small intestinal resection [Recovered/Resolved with Sequelae]
  - Intestinal ischaemia [Recovered/Resolved with Sequelae]

NARRATIVE: CASE EVENT DATE: 20190107
